FAERS Safety Report 16839400 (Version 1)
Quarter: 2019Q3

REPORT INFORMATION
  Report Type: Report from Study
  Country: DE (occurrence: DE)
  Receive Date: 20190923
  Receipt Date: 20190923
  Transmission Date: 20191005
  Serious: No
  Sender: FDA-Public Use
  Company Number: DE-009507513-0301DEU00134

PATIENT
  Age: 45 Year
  Sex: Female
  Weight: 62 kg

DRUGS (10)
  1. PREDNISOLONE. [Concomitant]
     Active Substance: PREDNISOLONE
     Indication: IMMUNOSUPPRESSION
     Dosage: 5 MG, QD
     Route: 048
     Dates: start: 1994
  2. IMUREK (AZATHIOPRINE) [Interacting]
     Active Substance: AZATHIOPRINE
     Indication: IMMUNOSUPPRESSION
     Dosage: 50 MG, QD
     Route: 048
     Dates: start: 1994
  3. THIOCTACID [Concomitant]
     Active Substance: .ALPHA.-LIPOIC ACID
     Indication: IMMUNOSUPPRESSION
     Dosage: 600 MG, QD
     Route: 048
     Dates: start: 1998
  4. PEPDUL [Concomitant]
     Active Substance: FAMOTIDINE
     Indication: PROPHYLAXIS
     Dosage: 20 MG, QD
     Route: 048
     Dates: start: 1998, end: 20021106
  5. KELTICAN N CAPSULES [Concomitant]
     Indication: POLYNEUROPATHY
     Dosage: 4 DOSAGE FORM, QD
     Route: 048
     Dates: start: 1998
  6. BENZBROMARONE [Concomitant]
     Active Substance: BENZBROMARONE
     Indication: HYPERURICAEMIA
     Dosage: 100 MG, QD
     Route: 048
     Dates: start: 1998
  7. ZOCOR [Suspect]
     Active Substance: SIMVASTATIN
     Indication: HYPERCHOLESTEROLAEMIA
     Dosage: 60 MG, QD
     Route: 048
     Dates: start: 20021015, end: 20021106
  8. KARVEA [Concomitant]
     Active Substance: IRBESARTAN
     Indication: HYPERTENSION
     Dosage: 300 MILLIGRAM, QD (150 MG, BID)
     Route: 048
     Dates: start: 1998
  9. SANDIMMUN [Interacting]
     Active Substance: CYCLOSPORINE
     Indication: RENAL TRANSPLANT
     Dosage: 250MG/DAY
     Route: 048
     Dates: start: 1994
  10. FUROSEMIDE. [Concomitant]
     Active Substance: FUROSEMIDE
     Indication: HYPERTENSION
     Dosage: 40 MILLIGRAM, QD (20 MG, QD)
     Route: 048
     Dates: start: 1994

REACTIONS (13)
  - Myoglobin blood increased [Recovered/Resolved]
  - Liver function test abnormal [Recovered/Resolved]
  - Myalgia [Recovered/Resolved]
  - Haematocrit decreased [Recovered/Resolved]
  - Haemoglobin decreased [Recovered/Resolved]
  - C-reactive protein increased [Recovered/Resolved]
  - Drug interaction [Recovered/Resolved]
  - Myopathy [Recovered/Resolved]
  - Blood urea increased [Recovered/Resolved]
  - Fatigue [Recovered/Resolved]
  - Blood lactate dehydrogenase increased [Recovered/Resolved]
  - Blood creatinine increased [Recovered/Resolved]
  - Blood creatine phosphokinase increased [Recovered/Resolved]

NARRATIVE: CASE EVENT DATE: 200210
